FAERS Safety Report 22635318 (Version 6)
Quarter: 2024Q4

REPORT INFORMATION
  Report Type: Spontaneous
  Country: IN (occurrence: IN)
  Receive Date: 20230623
  Receipt Date: 20241219
  Transmission Date: 20250115
  Serious: Yes (Other)
  Sender: PFIZER
  Company Number: IN-PFIZER INC-PV202200065995

PATIENT
  Age: 46 Year
  Sex: Female

DRUGS (2)
  1. LORLATINIB [Suspect]
     Active Substance: LORLATINIB
     Indication: Non-small cell lung cancer metastatic
     Dosage: 100 MG, 1X/DAY
     Route: 048
     Dates: start: 202010
  2. LORLATINIB [Suspect]
     Active Substance: LORLATINIB
     Dosage: 75 MG, 1X/DAY
     Route: 048

REACTIONS (21)
  - Sepsis [Unknown]
  - Urinary tract infection [Unknown]
  - Pulmonary fibrosis [Unknown]
  - Encephalopathy [Unknown]
  - Hallucination [Unknown]
  - Low density lipoprotein increased [Unknown]
  - Blood cholesterol increased [Unknown]
  - Blood triglycerides increased [Unknown]
  - Haemoglobin decreased [Unknown]
  - Bacterial test positive [Unknown]
  - White blood cell count decreased [Unknown]
  - Platelet count decreased [Unknown]
  - C-reactive protein increased [Unknown]
  - Blood bilirubin decreased [Unknown]
  - Glycosylated haemoglobin increased [Unknown]
  - Blood creatinine decreased [Unknown]
  - Weight increased [Unknown]
  - Bone lesion [Unknown]
  - Blood pressure increased [Unknown]
  - Abnormal behaviour [Unknown]
  - Dysuria [Unknown]

NARRATIVE: CASE EVENT DATE: 20230309
